FAERS Safety Report 5739437-7 (Version None)
Quarter: 2008Q2

REPORT INFORMATION
  Report Type: 
  Country: None (occurrence: None)
  Receive Date: 20080515
  Receipt Date: 20080507
  Transmission Date: 20081010
  Serious: Yes (Other)
  Sender: FDA-Public Use
  Company Number: US-PFIZER INC-2008039650

PATIENT
  Sex: Male
  Weight: 250 kg

DRUGS (5)
  1. LIPITOR [Suspect]
     Indication: BLOOD CHOLESTEROL INCREASED
  2. BROMFENEX [Concomitant]
  3. MONTELUKAST SODIUM [Concomitant]
  4. RHINOCORT [Concomitant]
  5. MULTI-VITAMINS [Concomitant]

REACTIONS (1)
  - ERECTILE DYSFUNCTION [None]
